FAERS Safety Report 10359153 (Version 3)
Quarter: 2014Q4

REPORT INFORMATION
  Report Type: Report from Study
  Country: JP (occurrence: JP)
  Receive Date: 20140804
  Receipt Date: 20141105
  Transmission Date: 20150528
  Serious: Yes (Other)
  Sender: FDA-Public Use
  Company Number: PHHY2014JP092413

PATIENT
  Age: 10 Year
  Sex: Male

DRUGS (6)
  1. ACZ885 [Suspect]
     Active Substance: CANAKINUMAB
     Indication: MUCKLE-WELLS SYNDROME
     Dosage: 150 MG
     Route: 058
  2. ACZ885 [Suspect]
     Active Substance: CANAKINUMAB
     Dosage: 64 MG, QD
     Route: 058
     Dates: start: 20140225, end: 20140225
  3. ACZ885 [Suspect]
     Active Substance: CANAKINUMAB
     Dosage: 128 MG QD
     Route: 058
     Dates: start: 20140602, end: 20140602
  4. ACZ885 [Suspect]
     Active Substance: CANAKINUMAB
     Dosage: 128 MG QD
     Route: 058
     Dates: start: 20140408, end: 20140408
  5. ACZ885 [Suspect]
     Active Substance: CANAKINUMAB
     Dosage: 128 MG QD
     Route: 058
     Dates: start: 20140724
  6. BRUFEN//IBUPROFEN [Concomitant]
     Active Substance: IBUPROFEN
     Indication: MUCKLE-WELLS SYNDROME
     Route: 048
     Dates: start: 20131018

REACTIONS (2)
  - Therapeutic response decreased [Unknown]
  - Meningitis [Recovered/Resolved]

NARRATIVE: CASE EVENT DATE: 20140714
